FAERS Safety Report 16534385 (Version 7)
Quarter: 2020Q2

REPORT INFORMATION
  Report Type: Report from Study
  Country: DE (occurrence: DE)
  Receive Date: 20190705
  Receipt Date: 20200430
  Transmission Date: 20200713
  Serious: Yes (Other)
  Sender: FDA-Public Use
  Company Number: PHHY2018DE039269

PATIENT
  Sex: Female
  Weight: 42 kg

DRUGS (32)
  1. EXJADE [Suspect]
     Active Substance: DEFERASIROX
     Indication: IRON OVERLOAD
     Dosage: 8.6 MG/KG  BODYWEIGHT /DAY (180MG)
     Route: 065
     Dates: start: 20171026, end: 20171219
  2. CICLOSPORIN [Suspect]
     Active Substance: CYCLOSPORINE
     Dosage: 2X 1.4 ML (= 280 MG PER DAY)
     Route: 065
     Dates: start: 20180705, end: 20180913
  3. PREDNISOLONE. [Concomitant]
     Active Substance: PREDNISOLONE
     Dosage: 35 MG, QD
     Route: 065
     Dates: start: 20181120, end: 20181120
  4. PREDNISOLONE. [Concomitant]
     Active Substance: PREDNISOLONE
     Dosage: 30 MG, QD
     Route: 065
     Dates: start: 20181121, end: 20181121
  5. PREDNISOLONE. [Concomitant]
     Active Substance: PREDNISOLONE
     Dosage: 5 MG, QD
     Route: 065
     Dates: start: 20181126, end: 20181126
  6. CICLOSPORIN [Suspect]
     Active Substance: CYCLOSPORINE
     Dosage: 2X 1.3 ML (= 260 MG PER DAY)
     Route: 065
     Dates: start: 20171026, end: 20180124
  7. ATGAM [Suspect]
     Active Substance: EQUINE THYMOCYTE IMMUNE GLOBULIN
     Indication: APLASTIC ANAEMIA
     Dosage: 1600 MG, QD
     Route: 065
     Dates: start: 20181105, end: 20181108
  8. PIPERACILLIN AND TAZOBACTAM [Concomitant]
     Active Substance: PIPERACILLIN SODIUM\TAZOBACTAM SODIUM
     Indication: PROPHYLAXIS
     Dosage: UNK
     Route: 065
     Dates: start: 20181105, end: 20181112
  9. EXJADE [Suspect]
     Active Substance: DEFERASIROX
     Dosage: 12.85 MG/KG BODYWEIGHT /DAY (= 1X 180MG TABLET + 1X 360MG TABLET)
     Route: 065
     Dates: start: 20171220, end: 20180410
  10. CICLOSPORIN [Suspect]
     Active Substance: CYCLOSPORINE
     Dosage: 340 MG, QD (1.7-0-1.7ML)
     Route: 065
     Dates: start: 20181212, end: 20190131
  11. CICLOSPORIN [Suspect]
     Active Substance: CYCLOSPORINE
     Dosage: 340 MG, QD (1.7-0-1.7ML)
     Route: 065
     Dates: start: 20191023
  12. PREDNISOLONE. [Concomitant]
     Active Substance: PREDNISOLONE
     Indication: APLASTIC ANAEMIA
     Dosage: 40 MG, BID
     Route: 065
     Dates: start: 20181105, end: 20181119
  13. CICLOSPORIN [Suspect]
     Active Substance: CYCLOSPORINE
     Dosage: 1 ML, BID (260 MG)
     Route: 065
     Dates: start: 20170801, end: 20170917
  14. CICLOSPORIN [Suspect]
     Active Substance: CYCLOSPORINE
     Dosage: 2X 1.0 ML (= 200 MG PER DAY)
     Route: 065
     Dates: start: 20181112, end: 20181119
  15. CICLOSPORIN [Suspect]
     Active Substance: CYCLOSPORINE
     Dosage: 360 MG, QD (1.8-0-1.8ML)
     Route: 065
     Dates: start: 20190201, end: 20190717
  16. EXJADE [Suspect]
     Active Substance: DEFERASIROX
     Dosage: 4.5 MG/KG  BODYWEIGHT/DAY
     Route: 065
     Dates: start: 20190110
  17. CICLOSPORIN [Suspect]
     Active Substance: CYCLOSPORINE
     Dosage: 2X 1.6 ML (= 320 MG PER DAY)
     Route: 065
     Dates: start: 20180914, end: 20181104
  18. EXJADE [Suspect]
     Active Substance: DEFERASIROX
     Dosage: 9 MG/KG BODYWEIGHT/DAY
     Route: 065
     Dates: start: 20181219, end: 20190109
  19. CICLOSPORIN [Suspect]
     Active Substance: CYCLOSPORINE
     Dosage: 1 ML, BID (220 MG)
     Route: 065
     Dates: start: 20170627, end: 20170703
  20. CICLOSPORIN [Suspect]
     Active Substance: CYCLOSPORINE
     Dosage: 2X 1.4 ML (= 280 MG PER DAY)
     Route: 065
     Dates: start: 20180125, end: 20180423
  21. CICLOSPORIN [Suspect]
     Active Substance: CYCLOSPORINE
     Dosage: 2X 1.5 ML (= 290 MG PER DAY)
     Route: 065
     Dates: start: 20180424, end: 20180704
  22. CICLOSPORIN [Suspect]
     Active Substance: CYCLOSPORINE
     Dosage: 350 MG, QD (1.7-0-1.8ML)
     Route: 065
     Dates: start: 20190815, end: 20191022
  23. PREDNISOLONE. [Concomitant]
     Active Substance: PREDNISOLONE
     Dosage: 15 MG, QD
     Route: 065
     Dates: start: 20181124, end: 20181124
  24. PREDNISOLONE. [Concomitant]
     Active Substance: PREDNISOLONE
     Dosage: 10 MG, QD
     Route: 065
     Dates: start: 20181125, end: 20181125
  25. CICLOSPORIN [Suspect]
     Active Substance: CYCLOSPORINE
     Dosage: 2X 1.2 ML (= 240 MG PER DAY)
     Route: 065
     Dates: start: 20170918, end: 20171025
  26. CICLOSPORIN [Suspect]
     Active Substance: CYCLOSPORINE
     Dosage: 340 MG, QD (1.7-0-1.7ML)
     Route: 065
     Dates: start: 20190718, end: 20190814
  27. PREDNISOLONE. [Concomitant]
     Active Substance: PREDNISOLONE
     Dosage: 20 MG, QD
     Route: 065
     Dates: start: 20181123, end: 20181123
  28. EXJADE [Suspect]
     Active Substance: DEFERASIROX
     Dosage: 8.5 MG/KG BODYWEIGHT /DAY (= 1X 360MG TABLET)
     Route: 065
     Dates: start: 20180602, end: 20180917
  29. CICLOSPORIN [Suspect]
     Active Substance: CYCLOSPORINE
     Indication: APLASTIC ANAEMIA
     Dosage: 1 ML, BID (200 MG)
     Route: 065
     Dates: start: 20170614, end: 20170626
  30. CICLOSPORIN [Suspect]
     Active Substance: CYCLOSPORINE
     Dosage: 1 ML, BID (240 MG)
     Route: 065
     Dates: start: 20170704, end: 20170731
  31. CICLOSPORIN [Suspect]
     Active Substance: CYCLOSPORINE
     Dosage: 360 MG, QD (1.8ML-0-1.8ML)
     Route: 065
     Dates: start: 20181120, end: 20181211
  32. PREDNISOLONE. [Concomitant]
     Active Substance: PREDNISOLONE
     Dosage: 25 MG, QD
     Route: 065
     Dates: start: 20181122, end: 20181122

REACTIONS (5)
  - Renal failure [Not Recovered/Not Resolved]
  - Product use in unapproved indication [Unknown]
  - Blood creatinine increased [Recovering/Resolving]
  - Pyrexia [Recovered/Resolved]
  - Hypokalaemia [Recovered/Resolved]

NARRATIVE: CASE EVENT DATE: 20171204
